FAERS Safety Report 15209120 (Version 1)
Quarter: 2018Q3

REPORT INFORMATION
  Report Type: Spontaneous
  Country: CA (occurrence: CA)
  Receive Date: 20180727
  Receipt Date: 20180727
  Transmission Date: 20181010
  Serious: Yes (Other)
  Sender: FDA-Public Use
  Company Number: CA-TEVA-2018-CA-928592

PATIENT
  Age: 43 Year
  Sex: Female

DRUGS (2)
  1. TEVA?LETROZOLE [Suspect]
     Active Substance: LETROZOLE
     Indication: ENDOMETRIAL CANCER STAGE III
     Route: 048
     Dates: start: 201802, end: 201804
  2. PREDNISONE. [Suspect]
     Active Substance: PREDNISONE
     Route: 065

REACTIONS (3)
  - Rash [Not Recovered/Not Resolved]
  - Musculoskeletal chest pain [Not Recovered/Not Resolved]
  - Thrombosis [Not Recovered/Not Resolved]

NARRATIVE: CASE EVENT DATE: 201804
